FAERS Safety Report 25971983 (Version 1)
Quarter: 2025Q4

REPORT INFORMATION
  Report Type: Spontaneous
  Country: TW (occurrence: TW)
  Receive Date: 20251029
  Receipt Date: 20251029
  Transmission Date: 20260117
  Serious: Yes (Other)
  Sender: ASTELLAS
  Company Number: TW-ASTELLAS-2025-AER-059227

PATIENT
  Age: 68 Year
  Sex: Female
  Weight: 57 kg

DRUGS (4)
  1. PADCEV [Suspect]
     Active Substance: ENFORTUMAB VEDOTIN-EJFV
     Indication: Transitional cell cancer of the renal pelvis and ureter
     Dosage: EV X3
     Route: 065
     Dates: start: 202309, end: 202312
  2. PADCEV [Suspect]
     Active Substance: ENFORTUMAB VEDOTIN-EJFV
     Indication: Transitional cell carcinoma metastatic
     Dosage: EV X3
     Route: 065
     Dates: start: 202401, end: 202403
  3. PADCEV [Suspect]
     Active Substance: ENFORTUMAB VEDOTIN-EJFV
     Dosage: EV X3
     Route: 065
     Dates: start: 202408, end: 202410
  4. PADCEV [Suspect]
     Active Substance: ENFORTUMAB VEDOTIN-EJFV
     Route: 065
     Dates: start: 202411, end: 202501

REACTIONS (3)
  - Malignant neoplasm progression [Unknown]
  - Pruritus [Recovered/Resolved]
  - Rash [Recovered/Resolved]

NARRATIVE: CASE EVENT DATE: 20230101
